FAERS Safety Report 17130548 (Version 1)
Quarter: 2019Q4

REPORT INFORMATION
  Report Type: Spontaneous
  Country: VN (occurrence: VN)
  Receive Date: 20191209
  Receipt Date: 20191209
  Transmission Date: 20200122
  Serious: Yes (Life-Threatening, Other)
  Sender: FDA-Public Use
  Company Number: VN-ROCHE-2489454

PATIENT

DRUGS (1)
  1. ACTILYSE [Suspect]
     Active Substance: ALTEPLASE
     Indication: PRODUCT USED FOR UNKNOWN INDICATION
     Dosage: (50 MILLIGRAM, 1 EVERY 1 ONCE, 3 MG INTRAVENOUS (IV) BOLUS, 30 MG IV INFUSION FOR 1 HOURS)
     Route: 042

REACTIONS (2)
  - Coma [Unknown]
  - NIH stroke scale score increased [Unknown]
